FAERS Safety Report 4821079-9 (Version None)
Quarter: 2005Q4

REPORT INFORMATION
  Report Type: 
  Country: None (occurrence: None)
  Receive Date: 20051104
  Receipt Date: 20051026
  Transmission Date: 20060501
  Serious: Yes (Hospitalization)
  Sender: FDA-Public Use
  Company Number: EC-MERCK-0510PER00013

PATIENT
  Age: 58 Year
  Sex: Male

DRUGS (2)
  1. VIOXX [Suspect]
     Route: 065
     Dates: start: 19980201, end: 20040601
  2. TRIAZOLAM [Concomitant]
     Route: 065

REACTIONS (3)
  - ANEURYSM [None]
  - HERNIA [None]
  - MITRAL VALVE DISEASE [None]
